FAERS Safety Report 8397525-3 (Version None)
Quarter: 2012Q2

REPORT INFORMATION
  Report Type: 
  Country: None (occurrence: None)
  Receive Date: 20120529
  Receipt Date: 20120529
  Transmission Date: 20120825
  Serious: No
  Sender: FDA-Public Use
  Company Number: None

PATIENT
  Age: 55 Year
  Sex: Female
  Weight: 59.8748 kg

DRUGS (1)
  1. PHENAZOPYRIDINE HCL TAB [Suspect]
     Dosage: 100 MG BID  7-8 DAYS

REACTIONS (2)
  - PRURITUS [None]
  - RASH [None]
